FAERS Safety Report 10310158 (Version 2)
Quarter: 2014Q3

REPORT INFORMATION
  Report Type: Spontaneous
  Country: BR (occurrence: BR)
  Receive Date: 20140717
  Receipt Date: 20140717
  Transmission Date: 20150326
  Serious: Yes (Other)
  Sender: FDA-Public Use
  Company Number: BR-SA-2014SA016164

PATIENT
  Sex: Female

DRUGS (1)
  1. LANTUS [Suspect]
     Active Substance: INSULIN GLARGINE
     Indication: PRODUCT USED FOR UNKNOWN INDICATION
     Route: 058

REACTIONS (4)
  - Exposure during pregnancy [Unknown]
  - Caesarean section [Unknown]
  - Preterm premature rupture of membranes [Unknown]
  - Premature baby [Unknown]

NARRATIVE: CASE EVENT DATE: 20140419
